FAERS Safety Report 11010358 (Version 1)
Quarter: 2015Q2

REPORT INFORMATION
  Report Type: Spontaneous
  Country: GR (occurrence: GR)
  Receive Date: 20150410
  Receipt Date: 20150410
  Transmission Date: 20150821
  Serious: Yes (Hospitalization)
  Sender: FDA-Public Use
  Company Number: GR-BAYER-2015-086989

PATIENT
  Age: 71 Year
  Sex: Female

DRUGS (2)
  1. CIPROXIN [Suspect]
     Active Substance: CIPROFLOXACIN
     Indication: DIABETIC FOOT
     Dosage: 500 MG, QD
     Route: 048
     Dates: start: 201502, end: 20150324
  2. INSULIN [Concomitant]
     Active Substance: INSULIN NOS
     Indication: DIABETES MELLITUS

REACTIONS (9)
  - Delusion [None]
  - Pruritus generalised [None]
  - Generalised erythema [None]
  - Pulmonary oedema [Not Recovered/Not Resolved]
  - Somnolence [None]
  - Lip oedema [None]
  - Dyspnoea [Not Recovered/Not Resolved]
  - Eyelid oedema [None]
  - Hypersensitivity [None]

NARRATIVE: CASE EVENT DATE: 201502
